FAERS Safety Report 13033638 (Version 1)
Quarter: 2016Q4

REPORT INFORMATION
  Report Type: Spontaneous
  Country: US (occurrence: US)
  Receive Date: 20161216
  Receipt Date: 20161216
  Transmission Date: 20170207
  Serious: Yes (Other)
  Sender: FDA-Public Use
  Company Number: US-AMGEN-USASP2016175659

PATIENT
  Age: 74 Year
  Sex: Female

DRUGS (3)
  1. POTASSIUM [Concomitant]
     Active Substance: POTASSIUM
     Dosage: UNK
  2. NEULASTA [Suspect]
     Active Substance: PEGFILGRASTIM
     Indication: NEUTROPENIA
     Dosage: 6 MG, CYCLICAL
     Route: 065
     Dates: start: 20161201
  3. MAGNESIUM [Concomitant]
     Active Substance: MAGNESIUM
     Dosage: UNK

REACTIONS (7)
  - White blood cell count decreased [Not Recovered/Not Resolved]
  - Fatigue [Unknown]
  - Transfusion [Unknown]
  - Decreased appetite [Unknown]
  - Bone pain [Not Recovered/Not Resolved]
  - Discomfort [Unknown]
  - Mobility decreased [Unknown]

NARRATIVE: CASE EVENT DATE: 201612
